FAERS Safety Report 19063605 (Version 1)
Quarter: 2021Q1

REPORT INFORMATION
  Report Type: Spontaneous
  Country: US (occurrence: US)
  Receive Date: 20210326
  Receipt Date: 20210326
  Transmission Date: 20210420
  Serious: No
  Sender: FDA-Public Use
  Company Number: US-PFIZER INC-2020338330

PATIENT
  Age: 50 Year
  Sex: Male

DRUGS (2)
  1. INLYTA [Suspect]
     Active Substance: AXITINIB
     Dosage: 5MG TAB
     Dates: start: 20200813
  2. INLYTA [Suspect]
     Active Substance: AXITINIB
     Dosage: 1 MG TAB
     Dates: start: 20200814

REACTIONS (5)
  - Vomiting [Unknown]
  - Neoplasm progression [Unknown]
  - Constipation [Unknown]
  - Glossodynia [Unknown]
  - Taste disorder [Unknown]
